FAERS Safety Report 8022639-7 (Version None)
Quarter: 2012Q1

REPORT INFORMATION
  Report Type: 
  Country: None (occurrence: None)
  Receive Date: 20120104
  Receipt Date: 20111228
  Transmission Date: 20120608
  Serious: Yes (Hospitalization)
  Sender: FDA-Public Use
  Company Number: DE-GLAXOSMITHKLINE-B0772678A

PATIENT
  Sex: Female
  Weight: 68 kg

DRUGS (10)
  1. DOXORUBICIN HCL [Suspect]
     Indication: BREAST CANCER
     Dosage: 20MGM2 WEEKLY
     Route: 042
     Dates: start: 20111117
  2. LAPATINIB [Suspect]
     Indication: BREAST CANCER
     Dosage: 750MG PER DAY
     Route: 048
     Dates: start: 20111117
  3. RANITIC [Concomitant]
     Dates: start: 20111222, end: 20111222
  4. PACLITAXEL [Suspect]
     Indication: BREAST CANCER
     Dosage: 80MGM2 WEEKLY
     Route: 042
     Dates: start: 20111117
  5. CARBOPLATIN [Suspect]
     Indication: BREAST CANCER
     Route: 042
     Dates: start: 20111117
  6. CLEMASTINE FUMARATE [Concomitant]
     Dates: start: 20111222, end: 20111222
  7. BETAMETHASONE [Concomitant]
     Dates: start: 20111222, end: 20111222
  8. LOPERAMIDE [Concomitant]
     Dosage: 12MG PER DAY
     Dates: start: 20111117, end: 20111224
  9. TRASTUZUMAB [Suspect]
     Indication: BREAST CANCER
     Dosage: 6MGK EVERY 3 WEEKS
     Route: 042
     Dates: start: 20111117
  10. ONDANSETRON [Concomitant]
     Dates: start: 20111222, end: 20111223

REACTIONS (1)
  - PAIN IN EXTREMITY [None]
